FAERS Safety Report 6552745-5 (Version None)
Quarter: 2010Q1

REPORT INFORMATION
  Report Type: 
  Country: None (occurrence: None)
  Receive Date: 20100126
  Receipt Date: 20100120
  Transmission Date: 20100710
  Serious: Yes (Death)
  Sender: FDA-Public Use
  Company Number: PHHY2010MX03222

PATIENT
  Age: 86 Year
  Sex: Female

DRUGS (1)
  1. DIOVAN HCT [Suspect]
     Dosage: ONE TABLET (160/25 MG) PER DAY ORAL
     Route: 048

REACTIONS (1)
  - DEATH [None]
